FAERS Safety Report 7128152-3 (Version None)
Quarter: 2010Q4

REPORT INFORMATION
  Report Type: 
  Country: None (occurrence: None)
  Receive Date: 20101130
  Receipt Date: 20101125
  Transmission Date: 20110411
  Serious: Yes (Life-Threatening, Other)
  Sender: FDA-Public Use
  Company Number: JP-NOVOPROD-314967

PATIENT
  Sex: Female
  Weight: 49 kg

DRUGS (6)
  1. NOVORAPID CHU FLEXPEN [Suspect]
     Indication: TYPE 1 DIABETES MELLITUS
     Dosage: 7 IU, QD
     Route: 058
     Dates: start: 20090101
  2. LANTUS [Concomitant]
     Indication: TYPE 1 DIABETES MELLITUS
     Dosage: 9 IU, QD
     Route: 058
     Dates: start: 20090101
  3. PRAMIPEXOLE [Concomitant]
     Indication: RESTLESS LEGS SYNDROME
     Dosage: 0.125 UG, QD
     Route: 048
     Dates: start: 20100713
  4. THYRADIN [Concomitant]
     Indication: BASEDOW'S DISEASE
     Dosage: 125 UG, QD
     Route: 048
     Dates: start: 20100715
  5. PROPACIL [Concomitant]
     Indication: BASEDOW'S DISEASE
     Dosage: 100 MG, QD
     Route: 048
     Dates: start: 20100812
  6. RIMATIL [Concomitant]
     Indication: RHEUMATOID ARTHRITIS
     Dosage: 200 MG, QD
     Route: 048
     Dates: start: 20100710

REACTIONS (5)
  - ANTI-INSULIN ANTIBODY INCREASED [None]
  - CARDIO-RESPIRATORY ARREST [None]
  - HYPERGLYCAEMIA [None]
  - HYPOGLYCAEMIA [None]
  - HYPOGLYCAEMIC COMA [None]
